FAERS Safety Report 25572030 (Version 2)
Quarter: 2025Q3

REPORT INFORMATION
  Report Type: Spontaneous
  Country: US (occurrence: US)
  Receive Date: 20250717
  Receipt Date: 20250828
  Transmission Date: 20251021
  Serious: Yes (Hospitalization, Other)
  Sender: PFIZER
  Company Number: US-PFIZER INC-PV202500085514

PATIENT
  Age: 70 Year
  Sex: Male

DRUGS (3)
  1. XELJANZ [Suspect]
     Active Substance: TOFACITINIB CITRATE
     Indication: Colitis ulcerative
     Dosage: 10 MG, 2X/DAY
     Route: 048
     Dates: start: 202001
  2. XELJANZ [Suspect]
     Active Substance: TOFACITINIB CITRATE
     Dosage: 10 MG, 2X/DAY
     Route: 048
     Dates: start: 202001
  3. LACTULOSE [Concomitant]
     Active Substance: LACTULOSE

REACTIONS (6)
  - Upper limb fracture [Recovering/Resolving]
  - Fall [Recovering/Resolving]
  - Shoulder operation [Unknown]
  - Rash macular [Not Recovered/Not Resolved]
  - Gait inability [Recovering/Resolving]
  - Frequent bowel movements [Unknown]

NARRATIVE: CASE EVENT DATE: 20240101
